FAERS Safety Report 4449861-0 (Version None)
Quarter: 2004Q3

REPORT INFORMATION
  Report Type: 
  Country: None (occurrence: None)
  Receive Date: 20040915
  Receipt Date: 20040907
  Transmission Date: 20050211
  Serious: Yes (Death, Hospitalization)
  Sender: FDA-Public Use
  Company Number: US-BRISTOL-MYERS SQUIBB COMPANY-12696100

PATIENT
  Age: 66 Year
  Sex: Male

DRUGS (2)
  1. CETUXIMAB [Suspect]
     Indication: PANCREATIC CARCINOMA
     Dosage: 400MG/M2 ON DAY 1(04-AUG-04).250MG/M2 ON DAY 8,15,22.TOTAL DOSE THIS COURSE 2346MG
     Route: 042
     Dates: start: 20040825, end: 20040825
  2. GEMCITABINE [Suspect]
     Indication: PANCREATIC CARCINOMA
     Dosage: 1ST ON 04-AUG-04.GIVEN EVERY 7 DAYS.TOTAL DOSE GIVEN THIS COURSE 8160 MG-REMOVED FROM PROTOCOL
     Route: 042
     Dates: start: 20040825, end: 20040825

REACTIONS (1)
  - CEREBRAL ISCHAEMIA [None]
